FAERS Safety Report 7069649-4 (Version None)
Quarter: 2010Q4

REPORT INFORMATION
  Report Type: 
  Country: None (occurrence: None)
  Receive Date: 20101028
  Receipt Date: 20100325
  Transmission Date: 20110411
  Serious: Yes (Other)
  Sender: FDA-Public Use
  Company Number: US-WYE-H14331210

PATIENT
  Sex: Female
  Weight: 59.93 kg

DRUGS (2)
  1. EFFEXOR [Suspect]
     Indication: DEPRESSION
     Route: 048
     Dates: start: 20100201, end: 20100201
  2. EFFEXOR [Suspect]
     Indication: PAIN

REACTIONS (7)
  - AGITATION [None]
  - CONVULSION [None]
  - COORDINATION ABNORMAL [None]
  - DIARRHOEA [None]
  - DYSKINESIA [None]
  - HEADACHE [None]
  - INSOMNIA [None]
